FAERS Safety Report 12660517 (Version 1)
Quarter: 2016Q3

REPORT INFORMATION
  Report Type: Other
  Country: GB (occurrence: GB)
  Receive Date: 20160817
  Receipt Date: 20160817
  Transmission Date: 20161109
  Serious: Yes (Hospitalization, Other)
  Sender: FDA-Public Use
  Company Number: GB-CELLTRION HEALTHCARE HUNGARY KFT-2016GB001918

PATIENT

DRUGS (4)
  1. INFLIXIMAB [Suspect]
     Active Substance: INFLIXIMAB
     Indication: PSORIATIC ARTHROPATHY
     Dosage: UNK, ONCE IN 6 WEEKS
     Route: 042
  2. HUMIRA [Suspect]
     Active Substance: ADALIMUMAB
     Indication: PRODUCT USED FOR UNKNOWN INDICATION
     Dosage: 40 MG, 1/WEEK
     Route: 058
  3. METHOTREXATE. [Suspect]
     Active Substance: METHOTREXATE
     Indication: PSORIATIC ARTHROPATHY
     Dosage: UNK, 1/WEEK
     Route: 065
  4. ADALIMUMAB [Suspect]
     Active Substance: ADALIMUMAB
     Indication: PSORIATIC ARTHROPATHY
     Route: 065

REACTIONS (5)
  - Hepatic steatosis [Unknown]
  - Lupus-like syndrome [Not Recovered/Not Resolved]
  - Psoriatic arthropathy [Unknown]
  - Inappropriate schedule of drug administration [Unknown]
  - Colitis [None]
